FAERS Safety Report 6814976-6 (Version None)
Quarter: 2010Q3

REPORT INFORMATION
  Report Type: 
  Country: None (occurrence: None)
  Receive Date: 20100701
  Receipt Date: 20100701
  Transmission Date: 20110219
  Serious: Yes (Hospitalization, Other)
  Sender: FDA-Public Use
  Company Number: None

PATIENT
  Sex: Male
  Weight: 230 kg

DRUGS (1)
  1. COPAXONE [Suspect]
     Indication: MULTIPLE ALLERGIES
     Dosage: 20 MG DAILY BIG LUMPS BACK ON REBIF
     Dates: start: 20100501, end: 20100601

REACTIONS (1)
  - INJECTION SITE MASS [None]
